FAERS Safety Report 7785697-0 (Version None)
Quarter: 2011Q3

REPORT INFORMATION
  Report Type: 
  Country: None (occurrence: None)
  Receive Date: 20110929
  Receipt Date: 20110121
  Transmission Date: 20111222
  Serious: Yes (Other)
  Sender: FDA-Public Use
  Company Number: US-GLAXOSMITHKLINE-A0908051A

PATIENT
  Age: 17 Year
  Sex: Female

DRUGS (3)
  1. LAMICTAL [Suspect]
     Indication: CONVULSION
     Dosage: 8TAB TWICE PER DAY
     Route: 048
  2. KEPPRA [Concomitant]
  3. CLONAZEPAM [Concomitant]

REACTIONS (2)
  - PRODUCT QUALITY ISSUE [None]
  - CONVULSION [None]
